FAERS Safety Report 12699984 (Version 2)
Quarter: 2016Q4

REPORT INFORMATION
  Report Type: Spontaneous
  Country: US (occurrence: US)
  Receive Date: 20160830
  Receipt Date: 20161012
  Transmission Date: 20170207
  Serious: No
  Sender: FDA-Public Use
  Company Number: US-PFIZER INC-2016402600

PATIENT
  Age: 67 Year
  Sex: Female
  Weight: 76.2 kg

DRUGS (3)
  1. AZITHROMYCIN ANHYDROUS. [Suspect]
     Active Substance: AZITHROMYCIN ANHYDROUS
     Indication: PYREXIA
     Dosage: 250 MG, UNK (250MG DOSE PACK FOR 5 DAYS BY MOUTH)
     Route: 048
     Dates: start: 20160803, end: 20160807
  2. L-THYROXINE [Concomitant]
     Active Substance: LEVOTHYROXINE
     Indication: HYPOTHYROIDISM
     Dosage: 100 UG, UNK
  3. BETAMIL [Concomitant]
     Indication: GLAUCOMA
     Dosage: EYE DROPS

REACTIONS (2)
  - Product use issue [Unknown]
  - Dysgeusia [Recovering/Resolving]

NARRATIVE: CASE EVENT DATE: 201608
